FAERS Safety Report 24646303 (Version 1)
Quarter: 2024Q4

REPORT INFORMATION
  Report Type: Spontaneous
  Country: US (occurrence: US)
  Receive Date: 20241121
  Receipt Date: 20241121
  Transmission Date: 20250115
  Serious: No
  Sender: LEO PHARM
  Company Number: US-LEO Pharma-375276

PATIENT
  Sex: Female

DRUGS (1)
  1. ADBRY [Suspect]
     Active Substance: TRALOKINUMAB-LDRM
     Indication: Product used for unknown indication
     Dosage: STARTED ADBRY ABOUT 5 MONTHS AGO
     Dates: start: 2024

REACTIONS (3)
  - Vision blurred [Unknown]
  - Eye pruritus [Unknown]
  - Ocular hyperaemia [Unknown]

NARRATIVE: CASE EVENT DATE: 20241112
